FAERS Safety Report 8450279-4 (Version None)
Quarter: 2012Q2

REPORT INFORMATION
  Report Type: 
  Country: None (occurrence: None)
  Receive Date: 20120620
  Receipt Date: 20120612
  Transmission Date: 20120825
  Serious: Yes (Hospitalization)
  Sender: FDA-Public Use
  Company Number: US-NOVOPROD-353642

PATIENT
  Age: 12 Year
  Sex: Female
  Weight: 58.957 kg

DRUGS (2)
  1. NORDITROPIN FLEXPRO [Suspect]
     Indication: PRODUCT USED FOR UNKNOWN INDICATION
     Dosage: 2.5 MG, QD
     Route: 058
     Dates: start: 20111101, end: 20120201
  2. NORDITROPIN FLEXPRO [Suspect]
     Dosage: 1.7 MG, QD
     Route: 058
     Dates: start: 20120301

REACTIONS (1)
  - CSF SHUNT OPERATION [None]
